FAERS Safety Report 6136209-9 (Version None)
Quarter: 2009Q1

REPORT INFORMATION
  Report Type: 
  Country: None (occurrence: None)
  Receive Date: 20090325
  Receipt Date: 20090325
  Transmission Date: 20090719
  Serious: Yes (Other)
  Sender: FDA-Public Use
  Company Number: 2007S1005790

PATIENT
  Age: 68 Year
  Sex: Female
  Weight: 68.4932 kg

DRUGS (3)
  1. PHOSPHOSODA FLAVOR NOT SPECIFIED [Suspect]
     Indication: COLONOSCOPY
     Dosage: 90 ML; TOTAL; PO
     Route: 048
     Dates: start: 20030218, end: 20030218
  2. PROTONIX/01263201/ [Concomitant]
  3. PAXIL CR [Concomitant]

REACTIONS (13)
  - ABDOMINAL PAIN UPPER [None]
  - ANAEMIA [None]
  - ANOREXIA [None]
  - DIALYSIS [None]
  - DIARRHOEA [None]
  - DYSGEUSIA [None]
  - INFLUENZA LIKE ILLNESS [None]
  - LETHARGY [None]
  - NEPHROCALCINOSIS [None]
  - NEPHROPATHY [None]
  - RENAL FAILURE ACUTE [None]
  - RENAL FAILURE CHRONIC [None]
  - TUBULOINTERSTITIAL NEPHRITIS [None]
